FAERS Safety Report 9840569 (Version 2)
Quarter: 2014Q1

REPORT INFORMATION
  Report Type: Spontaneous
  Country: US (occurrence: US)
  Receive Date: 20140124
  Receipt Date: 20140124
  Transmission Date: 20141002
  Serious: No
  Sender: FDA-Public Use
  Company Number: US-PFIZER INC-2014001133

PATIENT
  Age: 70 Year
  Sex: Male

DRUGS (6)
  1. TIKOSYN [Suspect]
     Indication: ATRIAL FIBRILLATION
     Dosage: 500 UG, 2X/DAY
  2. LISINOPRIL [Suspect]
     Dosage: 10 MG, DAILY
  3. METFORMIN HCL [Suspect]
     Dosage: 850 MG, UNK
     Dates: start: 20100125
  4. LOVASTATIN [Suspect]
     Dosage: 1 DF, 2X/DAY
     Dates: start: 20100125
  5. TOPROL XL [Suspect]
     Dosage: 50 MG, DAILY
     Dates: start: 20110718
  6. COUMADIN [Suspect]
     Dosage: 2.5 MG, DAILY

REACTIONS (1)
  - Drug hypersensitivity [Unknown]
